FAERS Safety Report 7113346-3 (Version None)
Quarter: 2010Q4

REPORT INFORMATION
  Report Type: 
  Country: None (occurrence: None)
  Receive Date: 20101119
  Receipt Date: 20101109
  Transmission Date: 20110411
  Serious: Yes (Hospitalization)
  Sender: FDA-Public Use
  Company Number: NL-JNJFOC-20101103005

PATIENT
  Age: 44 Year
  Sex: Female

DRUGS (10)
  1. FENTANYL CITRATE [Suspect]
     Indication: ABDOMINAL PAIN
     Route: 065
  2. TRAMADOL HCL [Suspect]
     Indication: ABDOMINAL PAIN
     Route: 065
  3. PARACETAMOL [Suspect]
     Route: 065
  4. PARACETAMOL [Suspect]
     Indication: ABDOMINAL PAIN
     Route: 065
  5. GEMZAR [Suspect]
     Indication: PANCREATIC CARCINOMA
     Dosage: ONCE WEEKLY FOR 3 WEEKS FOLLOWED BY ONE WEEK OF REST
     Route: 042
  6. ORAMORPH SR [Suspect]
     Indication: ABDOMINAL PAIN
     Route: 065
  7. DICLOFENAC SODIUM [Suspect]
     Indication: ABDOMINAL PAIN
     Route: 065
  8. UNKNOWN MEDICATION [Suspect]
     Indication: PANCREATIC CARCINOMA
     Route: 065
  9. LACTULOSE [Concomitant]
     Indication: CONSTIPATION
     Route: 065
  10. MOVICOLON [Concomitant]
     Indication: CONSTIPATION
     Route: 065

REACTIONS (2)
  - CONDITION AGGRAVATED [None]
  - CONSTIPATION [None]
